FAERS Safety Report 16050859 (Version 4)
Quarter: 2020Q2

REPORT INFORMATION
  Report Type: Spontaneous
  Country: US (occurrence: US)
  Receive Date: 20190308
  Receipt Date: 20200617
  Transmission Date: 20200713
  Serious: No
  Sender: FDA-Public Use
  Company Number: US-PFIZER INC-2015476995

PATIENT
  Age: 62 Year
  Sex: Male
  Weight: 95.25 kg

DRUGS (3)
  1. VIAGRA [Suspect]
     Active Substance: SILDENAFIL CITRATE
     Dosage: UNK, AS NEEDED ONE HALF TABLET (SOMETIMES TAKES THE WHOLE)
     Route: 048
  2. VIAGRA [Suspect]
     Active Substance: SILDENAFIL CITRATE
     Dosage: 100 MG, UNK
  3. VIAGRA [Suspect]
     Active Substance: SILDENAFIL CITRATE
     Indication: ERECTILE DYSFUNCTION
     Dosage: 0.5 DF, SINGLE (HALF OF TABLET ONLY ONE TIME)
     Route: 048

REACTIONS (5)
  - Headache [Unknown]
  - Drug ineffective [Unknown]
  - Headache [Recovered/Resolved]
  - Product complaint [Unknown]
  - Poor quality product administered [Unknown]

NARRATIVE: CASE EVENT DATE: 20190222
